FAERS Safety Report 18586817 (Version 2)
Quarter: 2020Q4

REPORT INFORMATION
  Report Type: Spontaneous
  Country: DE (occurrence: DE)
  Receive Date: 20201207
  Receipt Date: 20201214
  Transmission Date: 20210114
  Serious: Yes (Hospitalization, Other)
  Sender: FDA-Public Use
  Company Number: DE-VERTEX PHARMACEUTICALS-2020-023725

PATIENT
  Age: 43 Year
  Sex: Female
  Weight: 56 kg

DRUGS (5)
  1. KAFTRIO [Suspect]
     Active Substance: ELEXACAFTOR\IVACAFTOR\TEZACAFTOR
     Indication: CYSTIC FIBROSIS
     Dosage: IVA 75 MG/ TEZA 50 MG/ ELEXA 100 MG, NORMAL DOSE
     Route: 048
     Dates: start: 20200926, end: 20201022
  2. CIPROFLOXACIN. [Suspect]
     Active Substance: CIPROFLOXACIN
     Dosage: 500 MG/ 8HR
     Route: 048
     Dates: start: 20201015, end: 20201022
  3. KALYDECO [Suspect]
     Active Substance: IVACAFTOR
     Indication: CYSTIC FIBROSIS
     Dosage: ONCE DAILY
     Route: 048
     Dates: start: 20200926, end: 20201022
  4. KAFTRIO [Suspect]
     Active Substance: ELEXACAFTOR\IVACAFTOR\TEZACAFTOR
     Indication: CYSTIC FIBROSIS
  5. CIPROFLOXACIN. [Suspect]
     Active Substance: CIPROFLOXACIN
     Indication: INFECTION
     Dosage: 500 MG/ 8HR
     Route: 048
     Dates: start: 20200925, end: 20201010

REACTIONS (3)
  - Haemoglobin decreased [Recovered/Resolved]
  - Pulmonary haemorrhage [Recovered/Resolved]
  - Haemoptysis [Recovered/Resolved]

NARRATIVE: CASE EVENT DATE: 202010
